FAERS Safety Report 6669818-9 (Version None)
Quarter: 2010Q2

REPORT INFORMATION
  Report Type: 
  Country: None (occurrence: None)
  Receive Date: 20100402
  Receipt Date: 20100323
  Transmission Date: 20101027
  Serious: Yes (Hospitalization)
  Sender: FDA-Public Use
  Company Number: 230557J10BRA

PATIENT
  Age: 45 Year
  Sex: Female

DRUGS (3)
  1. REBIF [Suspect]
     Indication: SECONDARY PROGRESSIVE MULTIPLE SCLEROSIS
     Dosage: 44 MCG, 3 IN 1 WEEKS
     Dates: start: 20070903
  2. AMITRIPTYLINE HYDROCHLORIDE [Concomitant]
  3. BACLOFEN [Concomitant]

REACTIONS (2)
  - MUSCULOSKELETAL STIFFNESS [None]
  - SWOLLEN TONGUE [None]
